FAERS Safety Report 9775667 (Version 1)
Quarter: 2013Q4

REPORT INFORMATION
  Report Type: Spontaneous
  Country: US (occurrence: US)
  Receive Date: 20131220
  Receipt Date: 20131220
  Transmission Date: 20140711
  Serious: Yes (Hospitalization, Other)
  Sender: FDA-Public Use
  Company Number: US-PFIZER INC-2013364255

PATIENT
  Age: 56 Year
  Sex: Female
  Weight: 90.7 kg

DRUGS (2)
  1. CHANTIX [Suspect]
     Dosage: UNK
  2. CHANTIX [Suspect]
     Dosage: UNK
     Dates: start: 201312

REACTIONS (2)
  - Spinal fracture [Recovered/Resolved]
  - Paralysis [Recovered/Resolved]
